FAERS Safety Report 17561666 (Version 2)
Quarter: 2020Q2

REPORT INFORMATION
  Report Type: Spontaneous
  Country: US (occurrence: US)
  Receive Date: 20200319
  Receipt Date: 20200406
  Transmission Date: 20200713
  Serious: Yes (Death)
  Sender: FDA-Public Use
  Company Number: US-TASMAN PHARMA, INC.-2020TSM00123

PATIENT
  Sex: Male
  Weight: 103.08 kg

DRUGS (13)
  1. STIOLTO RESPIMAT [Concomitant]
     Active Substance: OLODATEROL HYDROCHLORIDE\TIOTROPIUM BROMIDE MONOHYDRATE
  2. DOCUSATE [Concomitant]
     Active Substance: DOCUSATE
  3. ATORVASTATIN [Concomitant]
     Active Substance: ATORVASTATIN
  4. MIRALAX [Concomitant]
     Active Substance: POLYETHYLENE GLYCOL 3350
  5. MEMANTINE. [Concomitant]
     Active Substance: MEMANTINE
  6. CLOZAPINE. [Suspect]
     Active Substance: CLOZAPINE
     Indication: SCHIZOPHRENIA
     Dosage: 200 MG, 4X/DAY
     Route: 048
  7. TAMSULOSIN [Concomitant]
     Active Substance: TAMSULOSIN
  8. FENOFIBRATE. [Concomitant]
     Active Substance: FENOFIBRATE
  9. METOPROLOL. [Concomitant]
     Active Substance: METOPROLOL
  10. PANTOPRAZOLE [Concomitant]
     Active Substance: PANTOPRAZOLE
  11. OMEGA-3 ACIDS [Concomitant]
     Active Substance: OMEGA-3 FATTY ACIDS
  12. ASPIRIN. [Concomitant]
     Active Substance: ASPIRIN
  13. DONEPEZIL. [Concomitant]
     Active Substance: DONEPEZIL

REACTIONS (1)
  - Death [Fatal]
